FAERS Safety Report 26202915 (Version 1)
Quarter: 2025Q4

REPORT INFORMATION
  Report Type: Spontaneous
  Country: US (occurrence: US)
  Receive Date: 20251226
  Receipt Date: 20251226
  Transmission Date: 20260117
  Serious: No
  Sender: BAYER HEALTHCARE LLC
  Company Number: US-BAYER-2025A169055

PATIENT
  Sex: Female

DRUGS (1)
  1. MIRALAX [Suspect]
     Active Substance: POLYETHYLENE GLYCOL 3350
     Indication: Constipation
     Dosage: BASED ON OUR RECOMMENDED DOSAGE, 4 OZ OF WATER
     Route: 048
     Dates: start: 20251221, end: 202512

REACTIONS (1)
  - Therapeutic product effect delayed [Not Recovered/Not Resolved]
